FAERS Safety Report 7095995-4 (Version None)
Quarter: 2010Q4

REPORT INFORMATION
  Report Type: 
  Country: None (occurrence: None)
  Receive Date: 20101111
  Receipt Date: 20090514
  Transmission Date: 20110411
  Serious: No
  Sender: FDA-Public Use
  Company Number: US-KINGPHARMUSA00001-K200900589

PATIENT
  Age: 80 Year
  Sex: Female

DRUGS (1)
  1. SEPTRA [Suspect]

REACTIONS (1)
  - HYPERSENSITIVITY [None]
